FAERS Safety Report 25467080 (Version 1)
Quarter: 2025Q2

REPORT INFORMATION
  Report Type: Report from Study
  Country: CO (occurrence: CO)
  Receive Date: 20250623
  Receipt Date: 20250623
  Transmission Date: 20250716
  Serious: Yes (Hospitalization)
  Sender: BIOVITRUM
  Company Number: CO-AstraZeneca-CH-00892940A

PATIENT
  Age: 2 Month
  Sex: Male
  Weight: 2.05 kg

DRUGS (1)
  1. PALIVIZUMAB [Suspect]
     Active Substance: PALIVIZUMAB
     Indication: Antiviral prophylaxis
     Route: 030
     Dates: start: 20250506

REACTIONS (2)
  - Cyanosis [Unknown]
  - Apnoea [Unknown]

NARRATIVE: CASE EVENT DATE: 20250521
